FAERS Safety Report 12875718 (Version 3)
Quarter: 2019Q1

REPORT INFORMATION
  Report Type: Spontaneous
  Country: PL (occurrence: PL)
  Receive Date: 20161024
  Receipt Date: 20190215
  Transmission Date: 20190417
  Serious: Yes (Other)
  Sender: FDA-Public Use
  Company Number: PL-SUN PHARMACEUTICAL INDUSTRIES LTD-2016RR-126414

PATIENT
  Age: 50 Year
  Sex: Male

DRUGS (6)
  1. PEMETREKSED [Suspect]
     Active Substance: PEMETREXED
     Indication: PLEURAL MESOTHELIOMA
     Dosage: UNK
     Route: 065
     Dates: start: 200706, end: 200906
  2. DEXAMETHASONE. [Suspect]
     Active Substance: DEXAMETHASONE
     Indication: PRODUCT USED FOR UNKNOWN INDICATION
     Dosage: ONE DAY BEFORE THE CYTOSTATIC AGENT, ON THE DAY
     Route: 065
  3. PEMETREKSED [Suspect]
     Active Substance: PEMETREXED
     Dosage: UNK
     Route: 065
     Dates: start: 201011, end: 201406
  4. FOLIC ACID. [Concomitant]
     Active Substance: FOLIC ACID
     Indication: PRODUCT USED FOR UNKNOWN INDICATION
     Dosage: UNK, DAILY
     Route: 065
  5. CISPLATIN. [Suspect]
     Active Substance: CISPLATIN
     Indication: PLEURAL MESOTHELIOMA
     Dosage: UNK
     Route: 065
     Dates: start: 200706
  6. VITAMIN B12 [Concomitant]
     Active Substance: CYANOCOBALAMIN
     Indication: PRODUCT USED FOR UNKNOWN INDICATION
     Dosage: EVERY 9 WEEKS
     Route: 065

REACTIONS (3)
  - Renal impairment [Unknown]
  - Disease progression [Not Recovered/Not Resolved]
  - Type 1 diabetes mellitus [Unknown]
